FAERS Safety Report 5198869-9 (Version None)
Quarter: 2006Q4

REPORT INFORMATION
  Report Type: 
  Country: None (occurrence: None)
  Receive Date: 20060925
  Receipt Date: 20051216
  Transmission Date: 20070319
  Serious: Yes (Other)
  Sender: FDA-Public Use
  Company Number: US-JNJFOC-20051204638

PATIENT
  Age: 44 Year
  Sex: Male
  Weight: 72.5755 kg

DRUGS (7)
  1. CONCERTA [Suspect]
     Indication: DRUG USE FOR UNKNOWN INDICATION
     Dosage: 54 MG, 1 IN 1 DAY, ORAL
     Route: 048
     Dates: start: 20050801
  2. DILANTIN [Concomitant]
  3. TRILEPTAL [Concomitant]
  4. LAMICTAL [Concomitant]
  5. LACTULOSE [Concomitant]
  6. MULTIVITAMIN [Concomitant]
  7. KEPPRA [Concomitant]

REACTIONS (3)
  - BALANCE DISORDER [None]
  - CONVULSION [None]
  - COORDINATION ABNORMAL [None]
